FAERS Safety Report 8261728-9 (Version None)
Quarter: 2012Q2

REPORT INFORMATION
  Report Type: 
  Country: None (occurrence: None)
  Receive Date: 20120405
  Receipt Date: 20120323
  Transmission Date: 20120825
  Serious: Yes (Other)
  Sender: FDA-Public Use
  Company Number: US-MYLANLABS-2012S1006779

PATIENT
  Sex: Male

DRUGS (1)
  1. ATENOLOL [Suspect]

REACTIONS (4)
  - ANXIETY [None]
  - DEAFNESS UNILATERAL [None]
  - VERTIGO [None]
  - MEMORY IMPAIRMENT [None]
